FAERS Safety Report 26056660 (Version 1)
Quarter: 2025Q4

REPORT INFORMATION
  Report Type: Spontaneous
  Country: US (occurrence: US)
  Receive Date: 20251118
  Receipt Date: 20251118
  Transmission Date: 20260117
  Serious: No
  Sender: JOHNSON AND JOHNSON
  Company Number: US-JNJFOC-20251153967

PATIENT
  Sex: Male

DRUGS (2)
  1. STELARA [Suspect]
     Active Substance: USTEKINUMAB
     Indication: Psoriatic arthropathy
     Route: 058
     Dates: start: 202504
  2. STELARA [Suspect]
     Active Substance: USTEKINUMAB

REACTIONS (7)
  - Psoriasis [Not Recovered/Not Resolved]
  - Arthralgia [Not Recovered/Not Resolved]
  - Hepatic steatosis [Unknown]
  - Influenza like illness [Unknown]
  - Decreased appetite [Unknown]
  - Nausea [Unknown]
  - Pruritus [Unknown]
